FAERS Safety Report 8098320-5 (Version None)
Quarter: 2012Q1

REPORT INFORMATION
  Report Type: 
  Country: None (occurrence: None)
  Receive Date: 20120129
  Receipt Date: 20110925
  Transmission Date: 20120608
  Serious: Yes (Hospitalization)
  Sender: FDA-Public Use
  Company Number: US-ABBOTT-11P-163-0860216-00

PATIENT
  Age: 35 Year
  Sex: Female

DRUGS (16)
  1. ONDANSETRON HCL [Concomitant]
     Indication: NAUSEA
  2. PREDNISONE TAB [Concomitant]
     Indication: CROHN'S DISEASE
     Dosage: DAILY
  3. KLONOPIN [Concomitant]
     Indication: ANXIETY
  4. VITAMIN B-12 [Concomitant]
     Indication: VITAMIN B12 DEFICIENCY
  5. IMODIUM [Concomitant]
     Indication: DIARRHOEA
     Dosage: 8 TO 9 TABLETS DAILY
  6. FOLIC ACID [Concomitant]
     Indication: VITAMIN SUPPLEMENTATION
     Dosage: DAILY
  7. PRILOSEC [Concomitant]
     Indication: DYSPEPSIA
     Dosage: DAILY
  8. EXCEDRIN [Concomitant]
     Indication: MIGRAINE
  9. HUMIRA [Suspect]
     Indication: CROHN'S DISEASE
     Dates: start: 20110302, end: 20110501
  10. VITAMIN D [Concomitant]
     Indication: PRODUCT USED FOR UNKNOWN INDICATION
  11. PRILOSEC [Concomitant]
     Indication: GASTROOESOPHAGEAL REFLUX DISEASE
  12. PERCOCET [Concomitant]
     Indication: PAIN
     Dosage: 10/650 MG
  13. PHENERGAN [Concomitant]
     Indication: NAUSEA
     Dosage: DAILY
  14. LEXAPRO [Concomitant]
     Indication: DEPRESSION
     Dosage: DAILY
  15. MYLANTA [Concomitant]
     Indication: FLATULENCE
  16. CALCIUM WITH VITAMIN D [Concomitant]
     Indication: VITAMIN SUPPLEMENTATION
     Dosage: 500/200MG DAILY

REACTIONS (4)
  - RESPIRATORY TRACT INFECTION [None]
  - DRUG INEFFECTIVE [None]
  - CROHN'S DISEASE [None]
  - URINARY TRACT INFECTION [None]
